FAERS Safety Report 12860814 (Version 2)
Quarter: 2016Q4

REPORT INFORMATION
  Report Type: Spontaneous
  Country: AU (occurrence: AU)
  Receive Date: 20161019
  Receipt Date: 20161110
  Transmission Date: 20170207
  Serious: Yes (Life-Threatening, Other)
  Sender: FDA-Public Use
  Company Number: PHHY2016AU140883

PATIENT
  Age: 65 Year
  Sex: Female

DRUGS (1)
  1. DOXYCYCLINE SANDOZ [Suspect]
     Active Substance: DOXYCYCLINE
     Indication: MALARIA
     Dosage: 100 MG, QD
     Route: 065

REACTIONS (6)
  - Feeling abnormal [Unknown]
  - Rash [Unknown]
  - Palpitations [Recovering/Resolving]
  - Dyspnoea [Unknown]
  - Dyspepsia [Unknown]
  - Urticaria [Recovering/Resolving]
